FAERS Safety Report 23915566 (Version 2)
Quarter: 2024Q2

REPORT INFORMATION
  Report Type: Spontaneous
  Country: US (occurrence: US)
  Receive Date: 20240529
  Receipt Date: 20240611
  Transmission Date: 20240715
  Serious: No
  Sender: FDA-Public Use
  Company Number: US-TORRENT-00013583

PATIENT
  Age: 41 Year
  Sex: Female
  Weight: 108 kg

DRUGS (7)
  1. TIOPRONIN [Suspect]
     Active Substance: TIOPRONIN
     Indication: Cystinuria
     Dosage: 300 MG, 1 TAB 3 TIMES DAILY
     Route: 048
     Dates: start: 20240509
  2. ESCITALOPRAM [Concomitant]
     Active Substance: ESCITALOPRAM OXALATE
     Indication: Anxiety
     Dosage: 10 MG
     Route: 065
  3. HYDROXYZINE [Concomitant]
     Active Substance: HYDROXYZINE HYDROCHLORIDE
     Indication: Anxiety
     Dosage: 25 MG
     Route: 065
  4. LUNESTA [Concomitant]
     Active Substance: ESZOPICLONE
     Indication: Insomnia
     Dosage: UNKNOWN
     Route: 065
  5. MODAFINIL [Concomitant]
     Active Substance: MODAFINIL
     Indication: Sleep disorder
     Dosage: 100 MG
     Route: 065
  6. SODIUM BICARBONATE [Concomitant]
     Active Substance: SODIUM BICARBONATE
     Indication: Renal tubular acidosis
     Dosage: UNKNOWN
     Route: 065
  7. TOVIAZ [Concomitant]
     Active Substance: FESOTERODINE FUMARATE
     Indication: Bladder spasm
     Dosage: UNKNOWN
     Route: 065

REACTIONS (6)
  - Urinary sediment [Not Recovered/Not Resolved]
  - Muscle spasms [Not Recovered/Not Resolved]
  - Abdominal pain [Unknown]
  - Back pain [Unknown]
  - Blood urine present [Unknown]
  - Drug ineffective [Unknown]

NARRATIVE: CASE EVENT DATE: 20240509
